FAERS Safety Report 19484782 (Version 4)
Quarter: 2022Q2

REPORT INFORMATION
  Report Type: Spontaneous
  Country: US (occurrence: US)
  Receive Date: 20210702
  Receipt Date: 20220615
  Transmission Date: 20220720
  Serious: Yes (Hospitalization)
  Sender: FDA-Public Use
  Company Number: US-SA-SAC20210629000893

PATIENT
  Sex: Male

DRUGS (26)
  1. DUPIXENT [Suspect]
     Active Substance: DUPILUMAB
     Indication: Asthma
     Dosage: 300 MG, QOW
     Route: 058
     Dates: start: 20200424
  2. DUPIXENT [Suspect]
     Active Substance: DUPILUMAB
     Indication: Respiratory disorder
  3. ALBUTEROL [Concomitant]
     Active Substance: ALBUTEROL
  4. ALBUTEROL [Concomitant]
     Active Substance: ALBUTEROL
  5. AZELASTINE [Concomitant]
     Active Substance: AZELASTINE
  6. AZELASTINE [Concomitant]
     Active Substance: AZELASTINE
  7. LOSARTAN [Concomitant]
     Active Substance: LOSARTAN
  8. LOSARTAN [Concomitant]
     Active Substance: LOSARTAN
  9. MELOXICAM [Concomitant]
     Active Substance: MELOXICAM
  10. MOMETASONE [Concomitant]
     Active Substance: MOMETASONE
  11. MOMETASONE [Concomitant]
     Active Substance: MOMETASONE
  12. MONTELUKAST [Concomitant]
     Active Substance: MONTELUKAST SODIUM
     Indication: Asthma
  13. MONTELUKAST [Concomitant]
     Active Substance: MONTELUKAST SODIUM
  14. PREGABALIN [Concomitant]
     Active Substance: PREGABALIN
  15. PREGABALIN [Concomitant]
     Active Substance: PREGABALIN
  16. SPIRIVA [TIOTROPIUM BROMIDE] [Concomitant]
  17. SPIRIVA [TIOTROPIUM BROMIDE] [Concomitant]
  18. TOPIRAMATE [Concomitant]
     Active Substance: TOPIRAMATE
  19. TOPIRAMATE [Concomitant]
     Active Substance: TOPIRAMATE
  20. ESOMEPRAZOLE [Concomitant]
     Active Substance: ESOMEPRAZOLE
  21. FLUTICASONE PROPIONATE\SALMETEROL XINAFOATE [Concomitant]
     Active Substance: FLUTICASONE PROPIONATE\SALMETEROL XINAFOATE
  22. HYDROCHLOROTHIAZIDE [Concomitant]
     Active Substance: HYDROCHLOROTHIAZIDE
  23. FLUTICASONE PROPIONATE\SALMETEROL XINAFOATE [Concomitant]
     Active Substance: FLUTICASONE PROPIONATE\SALMETEROL XINAFOATE
  24. METHOCARBAMOL [Concomitant]
     Active Substance: METHOCARBAMOL
  25. METHOCARBAMOL [Concomitant]
     Active Substance: METHOCARBAMOL
  26. FLUTEC [FLUCONAZOLE] [Concomitant]

REACTIONS (3)
  - Asthma [Not Recovered/Not Resolved]
  - Impaired quality of life [Not Recovered/Not Resolved]
  - Product use in unapproved indication [Unknown]
